FAERS Safety Report 8011323-1 (Version None)
Quarter: 2011Q4

REPORT INFORMATION
  Report Type: 
  Country: None (occurrence: None)
  Receive Date: 20111228
  Receipt Date: 20111217
  Transmission Date: 20120403
  Serious: Yes (Death, Hospitalization)
  Sender: FDA-Public Use
  Company Number: US-PFIZER INC-2011297908

PATIENT
  Age: 74 Year
  Sex: Male
  Weight: 92 kg

DRUGS (2)
  1. MYLOTARG [Suspect]
     Indication: ACUTE MYELOID LEUKAEMIA
     Dosage: 3 MG/M2 OVER 2 HOURS ON DAY 8, TOTAL DOSE ADMINISTERED THIS COURSE 6.45MG
     Route: 042
     Dates: start: 20111122, end: 20111122
  2. AZACITIDINE [Suspect]
     Indication: ACUTE MYELOID LEUKAEMIA
     Dosage: 75MG/M2 ON DAYS 1-7, 160MG PER DAY, TOTAL DOSE ADMINISTERED THIS COURSE 1121MG
     Route: 058
     Dates: start: 20111115, end: 20111121

REACTIONS (4)
  - MULTI-ORGAN FAILURE [None]
  - SEPSIS [None]
  - ATRIAL FIBRILLATION [None]
  - FEBRILE NEUTROPENIA [None]
